FAERS Safety Report 11287504 (Version 1)
Quarter: 2015Q3

REPORT INFORMATION
  Report Type: Spontaneous
  Country: US (occurrence: None)
  Receive Date: 20150720
  Receipt Date: 20150720
  Transmission Date: 20151125
  Serious: Yes (Other)
  Sender: FDA-Public Use
  Company Number: None

PATIENT
  Age: 48 Year
  Sex: Female

DRUGS (1)
  1. NEULASTA [Suspect]
     Active Substance: PEGFILGRASTIM
     Indication: NEUTROPENIA
     Dosage: INJECTABLE Q21DAYS
     Route: 058
     Dates: start: 201505

REACTIONS (3)
  - Palpitations [None]
  - Anxiety [None]
  - Heart rate increased [None]

NARRATIVE: CASE EVENT DATE: 20150716
